FAERS Safety Report 9603772 (Version 2)
Quarter: 2013Q4

REPORT INFORMATION
  Report Type: Spontaneous
  Country: ES (occurrence: ES)
  Receive Date: 20131007
  Receipt Date: 20131009
  Transmission Date: 20140711
  Serious: Yes (Other)
  Sender: FDA-Public Use
  Company Number: ES-AMGEN-ESPSP2013069147

PATIENT
  Age: 67 Year
  Sex: Female

DRUGS (1)
  1. PROLIA [Suspect]
     Indication: OSTEOPOROSIS
     Dosage: UNK
     Route: 065
     Dates: start: 201210

REACTIONS (2)
  - Arrhythmia [Recovered/Resolved]
  - Tooth disorder [Recovered/Resolved]
